FAERS Safety Report 21596172 (Version 1)
Quarter: 2022Q4

REPORT INFORMATION
  Report Type: Report from Study
  Country: US (occurrence: US)
  Receive Date: 20221115
  Receipt Date: 20221115
  Transmission Date: 20230113
  Serious: Yes (Other)
  Sender: FDA-Public Use
  Company Number: US-MYLANLABS-2022M1125493

PATIENT
  Sex: Female

DRUGS (1)
  1. TOBI PODHALER [Suspect]
     Active Substance: TOBRAMYCIN
     Indication: Product used for unknown indication
     Dosage: 28 MILLIGRAM,  (USE 4 CAPSULES (112 MG TOTAL) 2 TIMES DAILY, 28 DAYS OF EVERY OTHER MONTH)

REACTIONS (1)
  - Bronchiectasis [Unknown]
